FAERS Safety Report 8288371-X (Version None)
Quarter: 2012Q2

REPORT INFORMATION
  Report Type: 
  Country: None (occurrence: None)
  Receive Date: 20120416
  Receipt Date: 20120409
  Transmission Date: 20120825
  Serious: Yes (Hospitalization, Other)
  Sender: FDA-Public Use
  Company Number: US-ALLERGAN-1205080US

PATIENT
  Age: 67 Year
  Sex: Female

DRUGS (2)
  1. UNKNOWN EYE MEDICINES [Concomitant]
     Indication: PRODUCT USED FOR UNKNOWN INDICATION
     Route: 065
  2. REFRESH CLASSIC [Suspect]
     Indication: PRODUCT USED FOR UNKNOWN INDICATION
     Dosage: HEAVY USE
     Route: 047

REACTIONS (5)
  - BLINDNESS [None]
  - EYE INFECTION [None]
  - EYE DISORDER [None]
  - EYE PAIN [None]
  - INJURY CORNEAL [None]
